FAERS Safety Report 7690485-X (Version None)
Quarter: 2011Q3

REPORT INFORMATION
  Report Type: 
  Country: None (occurrence: None)
  Receive Date: 20110818
  Receipt Date: 20110812
  Transmission Date: 20111222
  Serious: Yes (Other)
  Sender: FDA-Public Use
  Company Number: CA-PFIZER INC-2011065873

PATIENT
  Age: 6 Year
  Sex: Male
  Weight: 17.9 kg

DRUGS (4)
  1. BOSENTAN [Concomitant]
     Dosage: UNK
  2. SILDENAFIL CITRATE [Suspect]
     Indication: EISENMENGER'S SYNDROME
     Dosage: 8 MG, 3X/DAY
     Route: 048
     Dates: start: 20110308, end: 20110315
  3. LEVOTHYROXINE SODIUM [Concomitant]
     Dosage: UNK
  4. INSULIN [Concomitant]
     Dosage: UNK

REACTIONS (1)
  - HYPOGLYCAEMIA [None]
